FAERS Safety Report 9501619 (Version 1)
Quarter: 2013Q3

REPORT INFORMATION
  Report Type: Spontaneous
  Country: US (occurrence: US)
  Receive Date: 20130905
  Receipt Date: 20130905
  Transmission Date: 20140515
  Serious: Yes (Death, Hospitalization)
  Sender: FDA-Public Use
  Company Number: US-PERRIGO-13US009037

PATIENT
  Age: 45 Year
  Sex: Female

DRUGS (2)
  1. DIHYDROERGOTAMINE MESYLATE [Suspect]
     Indication: STATUS MIGRAINOSUS
     Dosage: UNKNOWN
     Route: 042
  2. CITALOPRAM [Suspect]
     Indication: DEPRESSION
     Dosage: UNKNOWN
     Route: 065

REACTIONS (4)
  - Cerebral vasoconstriction [Fatal]
  - Confusional state [Unknown]
  - Cerebral infarction [Unknown]
  - Intracranial pressure increased [Unknown]
